FAERS Safety Report 4293845-2 (Version None)
Quarter: 2004Q1

REPORT INFORMATION
  Report Type: 
  Country: None (occurrence: None)
  Receive Date: 20040212
  Receipt Date: 20040205
  Transmission Date: 20041129
  Serious: Yes (Hospitalization)
  Sender: FDA-Public Use
  Company Number: PHRM2004FR00742

PATIENT
  Age: 50 Year
  Sex: Female
  Weight: 50 kg

DRUGS (2)
  1. TEGRETOL-XR [Suspect]
     Indication: PARTIAL SEIZURES
     Dosage: 1 DF, ONCE/SINGLE
     Route: 048
  2. TEGRETOL-XR [Suspect]
     Dosage: 200 MG, QD
     Route: 048
     Dates: start: 20031201, end: 20031210

REACTIONS (11)
  - AGITATION [None]
  - ANTINUCLEAR ANTIBODY POSITIVE [None]
  - ANTIPHOSPHOLIPID ANTIBODIES POSITIVE [None]
  - BALANCE DISORDER [None]
  - COMA [None]
  - CONVULSION [None]
  - DEPRESSED LEVEL OF CONSCIOUSNESS [None]
  - ELECTROENCEPHALOGRAM ABNORMAL [None]
  - HYPONATRAEMIA [None]
  - MENINGISM [None]
  - SYSTEMIC LUPUS ERYTHEMATOSUS [None]
